FAERS Safety Report 7293257-3 (Version None)
Quarter: 2011Q1

REPORT INFORMATION
  Report Type: 
  Country: None (occurrence: None)
  Receive Date: 20110210
  Receipt Date: 20110210
  Transmission Date: 20110831
  Serious: Yes (Death, Hospitalization)
  Sender: FDA-Public Use
  Company Number: None

PATIENT
  Sex: Male
  Weight: 62.4 kg

DRUGS (2)
  1. TEMSIROLIMUS [Suspect]
     Indication: RENAL CELL CARCINOMA
     Dosage: 10 MG IV WEEKLY
     Route: 042
     Dates: start: 20101216, end: 20101216
  2. RAZOPANIB-PFIZER [Suspect]
     Indication: RENAL CELL CARCINOMA
     Dosage: 200 MG PO DAILY
     Route: 048
     Dates: start: 20101216, end: 20110131

REACTIONS (1)
  - DYSPNOEA [None]
